FAERS Safety Report 5374082-7 (Version None)
Quarter: 2007Q2

REPORT INFORMATION
  Report Type: 
  Country: None (occurrence: None)
  Receive Date: 20070627
  Receipt Date: 20070612
  Transmission Date: 20071010
  Serious: Yes (Hospitalization)
  Sender: FDA-Public Use
  Company Number: 2007000856

PATIENT
  Age: 72 Year
  Sex: Female
  Weight: 54.8852 kg

DRUGS (24)
  1. ERLOTINIB [Suspect]
     Indication: NON-SMALL CELL LUNG CANCER
     Dosage: 100 MG (QD), ORAL
     Route: 048
     Dates: start: 20061128
  2. BEVACIZUMAB OR PLACEBO          (INJECTION FOR INFUSION) [Suspect]
     Indication: NON-SMALL CELL LUNG CANCER
     Dosage: 915 MG (Q3W), INTRAVENOUS
     Route: 042
     Dates: start: 20061128
  3. BEVACIZUMAB OR PLACEBO           (INJECTION FOR INFUSION) [Suspect]
  4. MUPIROCIN CREAM              (MUPIROCIN) [Concomitant]
  5. NORVASC [Concomitant]
  6. ENALAPRIL        (ENALAPRIL) [Concomitant]
  7. SYNTHROID [Concomitant]
  8. SYSTANE        (MACROGOL) [Concomitant]
  9. BENZOCAINE     (BENZOCAINE) [Concomitant]
  10. COMPAZINE [Concomitant]
  11. ATIVAN [Concomitant]
  12. PREDNISONE TAB [Concomitant]
  13. TRAZODONE HCL [Concomitant]
  14. COLD AND SINUS REMEDIES [Concomitant]
  15. CIPRO [Concomitant]
  16. THROAT LOZENGES [Concomitant]
  17. IMODIUM [Concomitant]
  18. KEFLEX [Concomitant]
  19. REMERON [Concomitant]
  20. BACTROBAN [Concomitant]
  21. SALINE NASAL SPRAY               (SODIUM CHLORIDE) [Concomitant]
  22. HYDROCORTISONE CREAM              (HYDROCORTISONE) [Concomitant]
  23. OXYQUINOLINE [Concomitant]
  24. EUGENOL     (EUGENOL) [Concomitant]

REACTIONS (10)
  - DISEASE PROGRESSION [None]
  - DYSPHAGIA [None]
  - FATIGUE [None]
  - HYDROPNEUMOTHORAX [None]
  - HYPOXIA [None]
  - LUNG NEOPLASM [None]
  - MUCOSAL EXFOLIATION [None]
  - MUCOSAL INFLAMMATION [None]
  - OESOPHAGEAL STENOSIS [None]
  - PLEURAL EFFUSION [None]
